FAERS Safety Report 13820410 (Version 4)
Quarter: 2018Q2

REPORT INFORMATION
  Report Type: Spontaneous
  Country: US (occurrence: US)
  Receive Date: 20170801
  Receipt Date: 20180427
  Transmission Date: 20180711
  Serious: Yes (Death, Hospitalization, Other)
  Sender: FDA-Public Use
  Company Number: US-APOTEX-2017AP016062

PATIENT
  Age: 53 Year
  Sex: Male

DRUGS (4)
  1. TRAZODONE [Concomitant]
     Active Substance: TRAZODONE HYDROCHLORIDE
     Indication: DEPRESSION
     Dosage: UNK
     Route: 065
  2. RISPERIDONE. [Concomitant]
     Active Substance: RISPERIDONE
     Indication: DEPRESSION
     Dosage: UNK
     Route: 065
  3. DIVALPROEX [Concomitant]
     Active Substance: DIVALPROEX SODIUM
     Indication: DEPRESSION
     Dosage: UNK
     Route: 065
  4. AMLODIPINE BESYLATE. [Suspect]
     Active Substance: AMLODIPINE BESYLATE
     Indication: HYPERTENSION
     Dosage: 80 DF, SINGLE
     Route: 048

REACTIONS (11)
  - Mental status changes [Unknown]
  - Bradycardia [Recovering/Resolving]
  - Suicide attempt [Unknown]
  - Hyperhidrosis [Unknown]
  - Brain death [Fatal]
  - Pulseless electrical activity [Unknown]
  - Acute kidney injury [Unknown]
  - Hypotension [Recovering/Resolving]
  - Overdose [Unknown]
  - Brain injury [Fatal]
  - Cardiac arrest [Recovering/Resolving]
